FAERS Safety Report 5266980-X (Version None)
Quarter: 2007Q1

REPORT INFORMATION
  Report Type: 
  Country: None (occurrence: None)
  Receive Date: 20070316
  Receipt Date: 20070313
  Transmission Date: 20070707
  Serious: Yes (Other)
  Sender: FDA-Public Use
  Company Number: AU-BRISTOL-MYERS SQUIBB COMPANY-13713508

PATIENT

DRUGS (1)
  1. MUCOMYST [Suspect]
     Dosage: PT GIVEN 3 AMPOULES OF MUCOMYST INSTEAD OF 3 ML
     Route: 048

REACTIONS (1)
  - ACCIDENTAL OVERDOSE [None]
